FAERS Safety Report 17261927 (Version 1)
Quarter: 2020Q1

REPORT INFORMATION
  Report Type: Other
  Country: NO (occurrence: NO)
  Receive Date: 20200113
  Receipt Date: 20200113
  Transmission Date: 20200409
  Serious: Yes (Other)
  Sender: FDA-Public Use
  Company Number: NO-ASTELLAS-2020US000971

PATIENT
  Age: 60 Year
  Sex: Female
  Weight: 172 kg

DRUGS (1)
  1. BETMIGA [Suspect]
     Active Substance: MIRABEGRON
     Indication: URINARY INCONTINENCE
     Route: 065
     Dates: start: 20191126, end: 20191204

REACTIONS (4)
  - Flank pain [Recovering/Resolving]
  - Renal pain [Recovering/Resolving]
  - Urine flow decreased [Recovering/Resolving]
  - Exertional headache [Recovering/Resolving]

NARRATIVE: CASE EVENT DATE: 20191129
